FAERS Safety Report 22166318 (Version 2)
Quarter: 2023Q2

REPORT INFORMATION
  Report Type: Spontaneous
  Country: JP (occurrence: JP)
  Receive Date: 20230403
  Receipt Date: 20230410
  Transmission Date: 20230721
  Serious: Yes (Other)
  Sender: FDA-Public Use
  Company Number: JP-ONO-2022JP032350

PATIENT
  Age: 8 Decade
  Sex: Male

DRUGS (3)
  1. BRAFTOVI [Suspect]
     Active Substance: ENCORAFENIB
     Indication: Colon cancer
     Dosage: UNK
     Route: 048
     Dates: start: 202209
  2. MEKTOVI [Suspect]
     Active Substance: BINIMETINIB
     Indication: Colon cancer
     Dosage: UNK
     Route: 048
     Dates: start: 202209
  3. CETUXIMAB [Concomitant]
     Active Substance: CETUXIMAB
     Indication: Colon cancer
     Dosage: UNK
     Route: 065
     Dates: start: 202209

REACTIONS (2)
  - Neuropathy peripheral [Not Recovered/Not Resolved]
  - Cardiac dysfunction [Recovered/Resolved]

NARRATIVE: CASE EVENT DATE: 20221001
